FAERS Safety Report 5062109-1 (Version None)
Quarter: 2006Q3

REPORT INFORMATION
  Report Type: 
  Country: None (occurrence: None)
  Receive Date: 20060726
  Receipt Date: 20060612
  Transmission Date: 20061208
  Serious: Yes (Other)
  Sender: FDA-Public Use
  Company Number: US-ROCHE-451749

PATIENT
  Age: 82 Year
  Sex: Female
  Weight: 64.4 kg

DRUGS (1)
  1. BONIVA [Suspect]
     Indication: DRUG USE FOR UNKNOWN INDICATION
     Dosage: STRENGTH REPORTED AS 3 MG/3 ML.
     Route: 042
     Dates: start: 20060609

REACTIONS (4)
  - BLISTER [None]
  - EXTRAVASATION [None]
  - PAIN [None]
  - SKIN NECROSIS [None]
